FAERS Safety Report 23700402 (Version 1)
Quarter: 2024Q2

REPORT INFORMATION
  Report Type: Spontaneous
  Country: CN (occurrence: CN)
  Receive Date: 20240403
  Receipt Date: 20240403
  Transmission Date: 20240716
  Serious: Yes (Other)
  Sender: FDA-Public Use
  Company Number: CN-AMNEAL PHARMACEUTICALS-2024-AMRX-00973

PATIENT
  Age: 69 Year
  Sex: Male

DRUGS (4)
  1. DOXORUBICIN HYDROCHLORIDE [Suspect]
     Active Substance: DOXORUBICIN HYDROCHLORIDE
     Indication: Peripheral T-cell lymphoma unspecified
     Dosage: INFUSION 1 CYCLE
     Route: 042
  2. DOXORUBICIN HYDROCHLORIDE [Suspect]
     Active Substance: DOXORUBICIN HYDROCHLORIDE
     Dosage: INFUSION 2 CYCLE
     Route: 042
  3. DOXORUBICIN HYDROCHLORIDE [Suspect]
     Active Substance: DOXORUBICIN HYDROCHLORIDE
     Dosage: INFUSION 3 CYCLE
     Route: 042
  4. CHLORPHENIRAMINE MALEATE [Concomitant]
     Active Substance: CHLORPHENIRAMINE MALEATE
     Indication: Anaphylaxis prophylaxis
     Dosage: UNK
     Route: 065

REACTIONS (8)
  - Laryngeal oedema [Recovered/Resolved]
  - Hypoaesthesia [Recovered/Resolved]
  - Hypertrophy of tongue papillae [Recovered/Resolved]
  - Myalgia [Unknown]
  - Rash pruritic [Recovered/Resolved]
  - Nausea [Recovered/Resolved]
  - Vomiting [Recovered/Resolved]
  - Hypersensitivity [Recovered/Resolved]
